FAERS Safety Report 9398922 (Version 2)
Quarter: 2013Q3

REPORT INFORMATION
  Report Type: Report from Study
  Country: CI (occurrence: CI)
  Receive Date: 20130712
  Receipt Date: 20130829
  Transmission Date: 20140515
  Serious: Yes (Death)
  Sender: FDA-Public Use
  Company Number: CI-GILEAD-2013-0078746

PATIENT
  Age: 46 Year
  Sex: Female

DRUGS (5)
  1. EMTRICITABINE/TENOFOVIR DISOPROXIL FUMARATE [Suspect]
     Indication: HIV INFECTION
     Dosage: 1 DF, UNK
     Dates: start: 20090616, end: 20130411
  2. LOPINAVIR W/RITONAVIR [Suspect]
     Indication: HIV INFECTION
     Dosage: 2 DF, UNK
     Dates: start: 20090616, end: 20130520
  3. LAMIVUDINE [Suspect]
     Indication: HIV INFECTION
     Dosage: 2 DF, UNK
     Dates: start: 20130412, end: 20130520
  4. ABACAVIR [Suspect]
     Indication: HIV INFECTION
     Dosage: 2 DF, UNK
     Dates: start: 20130412, end: 20130520
  5. CO-TRIMOXAZOLE [Suspect]
     Indication: OPPORTUNISTIC INFECTION
     Dosage: 1 DF, UNK
     Dates: start: 20090616, end: 20111024

REACTIONS (1)
  - Renal failure [Fatal]
